FAERS Safety Report 9321130 (Version 2)
Quarter: 2013Q4

REPORT INFORMATION
  Report Type: Spontaneous
  Country: US (occurrence: US)
  Receive Date: 20130531
  Receipt Date: 20131028
  Transmission Date: 20140711
  Serious: No
  Sender: FDA-Public Use
  Company Number: US-PFIZER INC-2013164209

PATIENT
  Age: 83 Year
  Sex: Male
  Weight: 70.3 kg

DRUGS (8)
  1. ATORVASTATIN CALCIUM [Suspect]
     Indication: BLOOD CHOLESTEROL INCREASED
     Dosage: 20 MG DAILY
     Dates: start: 20130325, end: 201305
  2. ATORVASTATIN CALCIUM [Suspect]
     Dosage: 20 MG, UNK
  3. METOPROLOL [Concomitant]
     Indication: HYPERTENSION
     Dosage: 50 MG DAILY
  4. DIGOXIN [Concomitant]
     Dosage: 0.25 MG DAILY
  5. WARFARIN [Concomitant]
     Indication: ANTICOAGULANT THERAPY
     Dosage: 4 MG DAILY
  6. SYNTHROID [Concomitant]
     Dosage: ^0.035 MG^ DAILY
  7. VITAMIN B100 COMPLEX [Concomitant]
     Dosage: UNK, DAILY
  8. VITAMIN C [Concomitant]
     Dosage: 1000 IU DAILY

REACTIONS (2)
  - Myalgia [Unknown]
  - Myalgia [Unknown]
